FAERS Safety Report 5828266-1 (Version None)
Quarter: 2008Q4

REPORT INFORMATION
  Report Type: 
  Country: None (occurrence: None)
  Receive Date: 20080729
  Receipt Date: 20080717
  Transmission Date: 20090506
  Serious: Yes (Other)
  Sender: FDA-Public Use
  Company Number: 2008S1012642

PATIENT
  Age: 45 Year
  Sex: Female
  Weight: 59.8748 kg

DRUGS (2)
  1. METHIMAZOLE [Suspect]
     Dosage: 10 MG;4 TIMES A DAY;ORAL
     Route: 048
     Dates: start: 20080630, end: 20080711
  2. PROPRANOLOL [Concomitant]

REACTIONS (15)
  - ABDOMINAL PAIN [None]
  - BACK PAIN [None]
  - CHILLS [None]
  - DIARRHOEA [None]
  - DRUG DISPENSING ERROR [None]
  - FATIGUE [None]
  - FEELING ABNORMAL [None]
  - HEPATITIS [None]
  - INCORRECT DOSE ADMINISTERED [None]
  - IRRITABILITY [None]
  - LETHARGY [None]
  - NECK PAIN [None]
  - OVERDOSE [None]
  - PALPITATIONS [None]
  - PYREXIA [None]
